FAERS Safety Report 20112872 (Version 2)
Quarter: 2022Q1

REPORT INFORMATION
  Report Type: Spontaneous
  Country: US (occurrence: US)
  Receive Date: 20211125
  Receipt Date: 20220104
  Transmission Date: 20220424
  Serious: Yes (Other)
  Sender: FDA-Public Use
  Company Number: US-ELI_LILLY_AND_COMPANY-US202111007476

PATIENT
  Sex: Female

DRUGS (1)
  1. DULOXETINE HYDROCHLORIDE [Suspect]
     Active Substance: DULOXETINE HYDROCHLORIDE
     Indication: Fibromyalgia
     Dosage: 30 MG, BID
     Route: 065

REACTIONS (11)
  - Suicidal ideation [Unknown]
  - Electric shock sensation [Unknown]
  - Tremor [Unknown]
  - Disorientation [Unknown]
  - Headache [Unknown]
  - Mania [Unknown]
  - Drug withdrawal syndrome [Unknown]
  - Ear pain [Unknown]
  - Pruritus [Unknown]
  - Tinnitus [Unknown]
  - Muscle twitching [Unknown]
